FAERS Safety Report 11913579 (Version 1)
Quarter: 2016Q1

REPORT INFORMATION
  Report Type: Spontaneous
  Country: FR (occurrence: FR)
  Receive Date: 20160113
  Receipt Date: 20160113
  Transmission Date: 20160526
  Serious: Yes (Death, Life-Threatening, Hospitalization, Other)
  Sender: FDA-Public Use
  Company Number: FR-ASTRAZENECA-2016SE01734

PATIENT
  Age: 23437 Day
  Sex: Male

DRUGS (13)
  1. VENLAFAXINE [Concomitant]
     Active Substance: VENLAFAXINE HYDROCHLORIDE
     Dosage: 37.5 MG AT MORNING AND MIDDAY
  2. BISOPROLOL [Concomitant]
     Active Substance: BISOPROLOL
  3. BRILIQUE [Suspect]
     Active Substance: TICAGRELOR
     Indication: CORONARY ARTERY DISEASE
     Route: 048
  4. IKOREL [Concomitant]
     Active Substance: NICORANDIL
  5. PROCORALAN [Concomitant]
     Active Substance: IVABRADINE
  6. INEXIUM [Concomitant]
     Active Substance: ESOMEPRAZOLE
  7. AMLOR [Concomitant]
     Active Substance: AMLODIPINE BESYLATE
  8. PRAVASTATIN [Concomitant]
     Active Substance: PRAVASTATIN\PRAVASTATIN SODIUM
  9. EPINITRIL [Concomitant]
     Active Substance: NITROGLYCERIN
     Dosage: 1 PATCH 12 HOURS PER 24 EVERY DAY
  10. EZETROL [Concomitant]
     Active Substance: EZETIMIBE
  11. KARDEGIC [Suspect]
     Active Substance: ASPIRIN LYSINE
     Indication: CORONARY ARTERY DISEASE
     Route: 048
  12. ALPRAZOLAM. [Concomitant]
     Active Substance: ALPRAZOLAM
  13. TRITEC [Concomitant]
     Active Substance: RANITIDINE BISMUTH CITRATE

REACTIONS (8)
  - Red blood cell count decreased [Fatal]
  - Acute pulmonary oedema [Unknown]
  - Diverticulum intestinal [Unknown]
  - Blood pressure decreased [Unknown]
  - Diverticulum intestinal haemorrhagic [Unknown]
  - Rectal haemorrhage [Fatal]
  - Shock haemorrhagic [Fatal]
  - Acute myocardial infarction [Unknown]

NARRATIVE: CASE EVENT DATE: 20140925
